FAERS Safety Report 6577600-6 (Version None)
Quarter: 2010Q1

REPORT INFORMATION
  Report Type: 
  Country: None (occurrence: None)
  Receive Date: 20100211
  Receipt Date: 20100128
  Transmission Date: 20100710
  Serious: Yes (Other)
  Sender: FDA-Public Use
  Company Number: PHHY2010NO06837

PATIENT

DRUGS (6)
  1. STALEVO 100 [Suspect]
     Indication: PARKINSON'S DISEASE
     Dosage: 200/100/25 MG X 4
     Route: 048
     Dates: start: 20060101
  2. VESICARE [Interacting]
     Indication: NOCTURIA
     Dosage: 1 TABLET AT NIGHT
     Route: 048
     Dates: start: 20090731, end: 20091211
  3. ZESTRIL [Concomitant]
     Dosage: 2 DF/ DAY
     Dates: start: 19980101
  4. SELO-ZOK [Concomitant]
     Dosage: 1 DF/ DAY
     Dates: start: 19980101
  5. CENTYL [Concomitant]
     Dosage: 1 DF/ DAY
     Dates: start: 19990101
  6. ZOCOR [Concomitant]
     Dosage: 1 DF/ DAY
     Dates: start: 19980101

REACTIONS (2)
  - DRUG INTERACTION [None]
  - HALLUCINATION, VISUAL [None]
